FAERS Safety Report 9774003 (Version 1)
Quarter: 2013Q4

REPORT INFORMATION
  Report Type: Spontaneous
  Country: US (occurrence: US)
  Receive Date: 20131220
  Receipt Date: 20131220
  Transmission Date: 20140711
  Serious: No
  Sender: FDA-Public Use
  Company Number: US-BIOGENIDEC-2013BI120184

PATIENT
  Sex: Female

DRUGS (2)
  1. AVONEX [Suspect]
     Indication: MULTIPLE SCLEROSIS
     Route: 030
     Dates: start: 20120216
  2. BETASERON [Concomitant]

REACTIONS (4)
  - Optic neuritis [Not Recovered/Not Resolved]
  - Eye disorder [Not Recovered/Not Resolved]
  - Visual impairment [Not Recovered/Not Resolved]
  - Influenza like illness [Recovered/Resolved]
